FAERS Safety Report 4433978-0 (Version None)
Quarter: 2004Q3

REPORT INFORMATION
  Report Type: 
  Country: None (occurrence: None)
  Receive Date: 20040825
  Receipt Date: 20040809
  Transmission Date: 20050211
  Serious: Yes (Other)
  Sender: FDA-Public Use
  Company Number: USA040771718

PATIENT
  Age: 77 Year
  Sex: Female

DRUGS (1)
  1. EVISTA [Suspect]
     Dosage: UNK
     Route: 065

REACTIONS (2)
  - AORTIC ANEURYSM [None]
  - BODY HEIGHT DECREASED [None]
